FAERS Safety Report 10060730 (Version 1)
Quarter: 2014Q2

REPORT INFORMATION
  Report Type: Spontaneous
  Country: TR (occurrence: TR)
  Receive Date: 20140404
  Receipt Date: 20140404
  Transmission Date: 20141212
  Serious: Yes (Other)
  Sender: FDA-Public Use
  Company Number: TR-GILEAD-2014-0098644

PATIENT
  Age: 66 Year
  Sex: 0

DRUGS (1)
  1. VIREAD [Suspect]
     Indication: HEPATITIS B
     Route: 065

REACTIONS (3)
  - Osteoporosis [Unknown]
  - Bone pain [Unknown]
  - Vitamin D decreased [Unknown]
